FAERS Safety Report 11388370 (Version 1)
Quarter: 2015Q3

REPORT INFORMATION
  Report Type: Report from Study
  Country: US (occurrence: US)
  Receive Date: 20150817
  Receipt Date: 20150817
  Transmission Date: 20151125
  Serious: Yes (Hospitalization)
  Sender: FDA-Public Use
  Company Number: US-CELGENEUS-USA-2015080143

PATIENT
  Age: 43 Year
  Sex: Male
  Weight: 164.44 kg

DRUGS (1)
  1. REVLIMID [Suspect]
     Active Substance: LENALIDOMIDE
     Indication: PLASMA CELL MYELOMA
     Dosage: 3.2143 MILLIGRAM
     Route: 048
     Dates: start: 20150327, end: 20150417

REACTIONS (1)
  - Gouty arthritis [Unknown]

NARRATIVE: CASE EVENT DATE: 20150417
